FAERS Safety Report 8908367 (Version 1)
Quarter: 2012Q4

REPORT INFORMATION
  Report Type: Report from Study
  Country: CZ (occurrence: CZ)
  Receive Date: 20121114
  Receipt Date: 20121114
  Transmission Date: 20130627
  Serious: Yes (Death, Life-Threatening, Hospitalization, Disabling)
  Sender: FDA-Public Use
  Company Number: PHHO2012CZ005945

PATIENT
  Age: 59 Year
  Sex: Female
  Weight: 61 kg

DRUGS (6)
  1. AFINITOR [Suspect]
     Indication: NEUROENDOCRINE TUMOUR
     Dosage: 10 mg, QD
     Route: 048
     Dates: start: 20120309, end: 20120412
  2. SOMATULINE [Concomitant]
     Indication: PANCREATIC NEUROENDOCRINE TUMOUR
     Dosage: 90 mg, QMO
     Dates: start: 20051122, end: 20120327
  3. FRAGMIN [Concomitant]
     Indication: SPLENIC VEIN THROMBOSIS
     Dosage: UNK
     Dates: start: 200505, end: 20120416
  4. DILATREND [Concomitant]
     Indication: HYPERTENSION
     Dosage: UNK
     Dates: start: 2008, end: 20120416
  5. HELICID [Concomitant]
     Indication: PROPHYLAXIS
     Dosage: UNK
     Dates: start: 2006, end: 20120416
  6. OXYCONTIN [Concomitant]
     Indication: PAIN
     Dosage: UNK
     Dates: start: 20110913, end: 20120416

REACTIONS (7)
  - Respiratory failure [Fatal]
  - Renal failure [Fatal]
  - Sepsis [Not Recovered/Not Resolved]
  - Diarrhoea [Not Recovered/Not Resolved]
  - Pyrexia [Not Recovered/Not Resolved]
  - Vomiting [Not Recovered/Not Resolved]
  - Septic shock [Unknown]
